FAERS Safety Report 8930457 (Version 3)
Quarter: 2013Q1

REPORT INFORMATION
  Report Type: Spontaneous
  Country: US (occurrence: US)
  Receive Date: 20121128
  Receipt Date: 20130312
  Transmission Date: 20140127
  Serious: Yes (Hospitalization)
  Sender: FDA-Public Use
  Company Number: US-GILEAD-2012-0063255

PATIENT
  Sex: Male

DRUGS (3)
  1. LETAIRIS [Suspect]
     Indication: CHRONIC OBSTRUCTIVE PULMONARY DISEASE
     Dosage: 10 MG, UNK
     Route: 048
     Dates: start: 20120702
  2. LETAIRIS [Suspect]
     Dates: start: 20120702
  3. CIPRO                              /00697201/ [Concomitant]

REACTIONS (2)
  - Pneumonia [Unknown]
  - Swelling [Unknown]
